FAERS Safety Report 8822304 (Version 1)
Quarter: 2012Q4

REPORT INFORMATION
  Report Type: 
  Country: US (occurrence: US)
  Receive Date: 20121003
  Receipt Date: 20121003
  Transmission Date: 20130627
  Serious: Yes (Hospitalization)
  Sender: FDA-Public Use
  Company Number: US-BAYER-2012-101023

PATIENT
  Age: 50 Year
  Sex: Female

DRUGS (4)
  1. YAZ [Suspect]
     Indication: CONTRACEPTION
  2. YAZ [Suspect]
     Indication: HORMONE REPLACEMENT THERAPY
  3. CATAPRES [Concomitant]
  4. LASIX [Concomitant]
     Indication: HYPERTENSION

REACTIONS (2)
  - Deep vein thrombosis [None]
  - Pulmonary embolism [None]
